FAERS Safety Report 19386085 (Version 1)
Quarter: 2021Q2

REPORT INFORMATION
  Report Type: Spontaneous
  Country: US (occurrence: US)
  Receive Date: 20210608
  Receipt Date: 20210608
  Transmission Date: 20210717
  Serious: Yes (Hospitalization, Other)
  Sender: FDA-Public Use
  Company Number: US-LUPIN PHARMACEUTICALS INC.-2021-08885

PATIENT
  Age: 72 Year
  Sex: Female

DRUGS (6)
  1. ALBUTEROL SULFATE. [Suspect]
     Active Substance: ALBUTEROL SULFATE
     Indication: HYPERKALAEMIA
     Dosage: UNK
     Route: 065
  2. FUROSEMIDE. [Suspect]
     Active Substance: FUROSEMIDE
     Indication: HYPERKALAEMIA
     Dosage: UNK
     Route: 065
  3. CALCIUM [Suspect]
     Active Substance: CALCIUM
     Indication: HYPERKALAEMIA
     Dosage: UNK (CALCIUM GLUCONATE)
     Route: 065
  4. CALCIUM [Suspect]
     Active Substance: CALCIUM
     Dosage: UNK (CALCIUM POLYSTYRENE SULFONATE)
     Route: 065
  5. POTASSIUM CHLORIDE. [Suspect]
     Active Substance: POTASSIUM CHLORIDE
     Indication: PRODUCT USED FOR UNKNOWN INDICATION
     Dosage: 1800 MILLIEQUIVALENT (SUSTAINED RELEASE TABLET)
     Route: 048
  6. INSULIN [Suspect]
     Active Substance: INSULIN NOS
     Indication: HYPERKALAEMIA
     Dosage: UNK
     Route: 065

REACTIONS (7)
  - Electrocardiogram abnormal [Recovered/Resolved]
  - Haemodynamic instability [Recovered/Resolved]
  - Off label use [Unknown]
  - Therapy non-responder [Unknown]
  - Hyperkalaemia [Recovered/Resolved]
  - Intentional overdose [Unknown]
  - Ileus [Recovered/Resolved]
